FAERS Safety Report 8172563-4 (Version None)
Quarter: 2012Q1

REPORT INFORMATION
  Report Type: 
  Country: None (occurrence: None)
  Receive Date: 20120229
  Receipt Date: 20120224
  Transmission Date: 20120608
  Serious: No
  Sender: FDA-Public Use
  Company Number: US-PFIZER INC-2011311502

PATIENT
  Sex: Male

DRUGS (2)
  1. CHANTIX [Suspect]
     Indication: SMOKING CESSATION THERAPY
     Dosage: STARTER PACK 1 MG
     Dates: start: 20100121, end: 20100224
  2. IBUPROFEN [Concomitant]
     Indication: PAIN
     Dosage: UNK
     Dates: start: 20100121

REACTIONS (4)
  - ABNORMAL BEHAVIOUR [None]
  - MENTAL DISORDER [None]
  - EMOTIONAL DISTRESS [None]
  - AGGRESSION [None]
